FAERS Safety Report 8000223-9 (Version None)
Quarter: 2011Q4

REPORT INFORMATION
  Report Type: 
  Country: None (occurrence: None)
  Receive Date: 20111222
  Receipt Date: 20111210
  Transmission Date: 20120403
  Serious: Yes (Hospitalization)
  Sender: FDA-Public Use
  Company Number: JP-ELI_LILLY_AND_COMPANY-JP201109004228

PATIENT
  Sex: Female

DRUGS (4)
  1. FORTEO [Suspect]
     Dosage: UNK
     Route: 058
     Dates: start: 20111114
  2. FORTEO [Suspect]
     Dosage: UNK
     Route: 058
     Dates: end: 20111204
  3. FORTEO [Suspect]
     Dosage: UNK
     Route: 058
     Dates: end: 20111101
  4. ONEALFA [Concomitant]
     Dosage: UNK
     Route: 048
     Dates: end: 20111101

REACTIONS (6)
  - PIGMENTATION DISORDER [None]
  - DECREASED APPETITE [None]
  - SURGERY [None]
  - VOMITING [None]
  - DIZZINESS [None]
  - BLOOD CALCIUM INCREASED [None]
